FAERS Safety Report 10541818 (Version 1)
Quarter: 2014Q4

REPORT INFORMATION
  Report Type: Spontaneous
  Country: US (occurrence: US)
  Receive Date: 20141024
  Receipt Date: 20141024
  Transmission Date: 20150529
  Serious: No
  Sender: FDA-Public Use
  Company Number: US-NOVEN-14US009920

PATIENT
  Sex: Male

DRUGS (1)
  1. BRISDELLE [Suspect]
     Active Substance: PAROXETINE MESYLATE
     Indication: PREMATURE EJACULATION
     Dosage: 7.5 MG, UNK
     Dates: start: 20140722

REACTIONS (3)
  - Drug prescribing error [Unknown]
  - Off label use [Unknown]
  - No adverse event [None]
